FAERS Safety Report 8867093 (Version 1)
Quarter: 2012Q4

REPORT INFORMATION
  Report Type: 
  Country: US (occurrence: US)
  Receive Date: 20121025
  Receipt Date: 20121025
  Transmission Date: 20130627
  Serious: No
  Sender: FDA-Public Use
  Company Number: US-AMGEN-USASP2012015011

PATIENT
  Sex: Male

DRUGS (6)
  1. ENBREL [Suspect]
     Indication: PRODUCT USED FOR UNKNOWN INDICATION
     Dosage: 50 mg, qwk
     Route: 058
  2. METHOTREXATE [Concomitant]
     Dosage: 2.5 mg, UNK
  3. FOLIC ACID [Concomitant]
  4. SIMVASTATIN [Concomitant]
     Dosage: 10 mg, UNK
  5. LEVOXYL [Concomitant]
     Dosage: 100 mug, UNK
  6. FLUCYTOSINE [Concomitant]
     Dosage: 250 mg, UNK

REACTIONS (1)
  - Influenza like illness [Unknown]
